FAERS Safety Report 4505204-5 (Version None)
Quarter: 2004Q4

REPORT INFORMATION
  Report Type: 
  Country: None (occurrence: None)
  Receive Date: 20041015
  Receipt Date: 20040710
  Transmission Date: 20050328
  Serious: Yes (Other)
  Sender: FDA-Public Use
  Company Number: 2004046599

PATIENT
  Age: 32 Year
  Sex: Female
  Weight: 81.6475 kg

DRUGS (2)
  1. NEURONTIN [Suspect]
     Indication: FACIAL PAIN
     Dosage: 900 MG (300 MG, 3 IN 1 D), ORAL
     Route: 048
     Dates: start: 20040617, end: 20040701
  2. WARFARIN SODIUM [Concomitant]

REACTIONS (3)
  - DIPLOPIA [None]
  - EYE DISORDER [None]
  - VISION BLURRED [None]
